FAERS Safety Report 6706407-1 (Version None)
Quarter: 2010Q2

REPORT INFORMATION
  Report Type: 
  Country: None (occurrence: None)
  Receive Date: 20100503
  Receipt Date: 20100422
  Transmission Date: 20101027
  Serious: Yes (Hospitalization)
  Sender: FDA-Public Use
  Company Number: PHHY2010JP24110

PATIENT
  Sex: Male
  Weight: 90 kg

DRUGS (2)
  1. VOLTAREN [Suspect]
     Indication: BACK PAIN
     Dosage: 25 MG, TID
     Route: 048
     Dates: start: 20100324, end: 20100409
  2. MUCOSTA [Suspect]
     Indication: GASTRITIS
     Dosage: 300 MG
     Dates: start: 20100324, end: 20100409

REACTIONS (2)
  - INTERVERTEBRAL DISCITIS [None]
  - MYOCLONUS [None]
